FAERS Safety Report 6568000-3 (Version None)
Quarter: 2010Q1

REPORT INFORMATION
  Report Type: 
  Country: None (occurrence: None)
  Receive Date: 20100128
  Receipt Date: 20100114
  Transmission Date: 20100710
  Serious: Yes (Hospitalization)
  Sender: FDA-Public Use
  Company Number: SPV1-2010-00104

PATIENT
  Age: 10 Year
  Sex: Male

DRUGS (4)
  1. ELAPRASE [Suspect]
     Dosage: IV DRIP
     Route: 041
  2. CLARITIN /00413701/ [Concomitant]
  3. TYLENOL  /00020001/ (PARACETAMOL) [Concomitant]
  4. GLICLAZIDE [Concomitant]

REACTIONS (4)
  - EYELID OEDEMA [None]
  - INFUSION RELATED REACTION [None]
  - MEDICAL DEVICE COMPLICATION [None]
  - URTICARIA [None]
